FAERS Safety Report 17242236 (Version 1)
Quarter: 2019Q4

REPORT INFORMATION
  Report Type: Spontaneous
  Country: US (occurrence: US)
  Receive Date: 20191212
  Receipt Date: 20191212
  Transmission Date: 20200122
  Serious: Yes (Hospitalization)
  Sender: FDA-Public Use
  Company Number: None

PATIENT
  Age: 15 Year
  Sex: Male

DRUGS (2)
  1. CEFAZOLIN SODIUM. [Suspect]
     Active Substance: CEFAZOLIN SODIUM
     Indication: WOUND
     Route: 042
     Dates: start: 20191031, end: 20191129
  2. ADVIL [Concomitant]
     Active Substance: IBUPROFEN

REACTIONS (1)
  - Serum sickness [None]

NARRATIVE: CASE EVENT DATE: 20191129
